FAERS Safety Report 16694548 (Version 2)
Quarter: 2019Q3

REPORT INFORMATION
  Report Type: Spontaneous
  Country: GB (occurrence: GB)
  Receive Date: 20190812
  Receipt Date: 20190821
  Transmission Date: 20191004
  Serious: Yes (Hospitalization, Other)
  Sender: FDA-Public Use
  Company Number: GB-PFIZER INC-2019336690

PATIENT
  Age: 73 Year
  Sex: Male
  Weight: 95 kg

DRUGS (2)
  1. CISPLATIN. [Suspect]
     Active Substance: CISPLATIN
     Indication: GALLBLADDER NEOPLASM
     Dosage: 50 MG, UNK STRENGTH: 30 MG/M2; DAYS 1 AND 8
     Route: 042
     Dates: start: 20180912, end: 20190116
  2. GEMCITABINE HYDROCHLORIDE. [Suspect]
     Active Substance: GEMCITABINE HYDROCHLORIDE
     Indication: GALLBLADDER NEOPLASM
     Dosage: 2052 MG, UNK STRENGTH: 1000 MG/M2; DAYS 1 AND 8
     Route: 042
     Dates: start: 20180912, end: 20190116

REACTIONS (4)
  - Off label use [Unknown]
  - Lower respiratory tract infection [Recovered/Resolved]
  - Product use in unapproved indication [Unknown]
  - Neutrophil count decreased [Unknown]

NARRATIVE: CASE EVENT DATE: 20180912
